FAERS Safety Report 16231860 (Version 1)
Quarter: 2019Q2

REPORT INFORMATION
  Report Type: Report from Study
  Country: CA (occurrence: CA)
  Receive Date: 20190424
  Receipt Date: 20190424
  Transmission Date: 20190711
  Serious: Yes (Other)
  Sender: FDA-Public Use
  Company Number: CA-TEVA-2019-CA-1039897

PATIENT
  Age: 65 Year
  Sex: Female

DRUGS (4)
  1. IXAZOMIB [Suspect]
     Active Substance: IXAZOMIB
     Indication: PLASMA CELL MYELOMA
     Route: 048
  2. LENALIDOMIDE [Suspect]
     Active Substance: LENALIDOMIDE
     Indication: PLASMA CELL MYELOMA
     Route: 065
  3. DEXAMETHASONE. [Suspect]
     Active Substance: DEXAMETHASONE
     Indication: PLASMA CELL MYELOMA
     Route: 065
  4. ZOMETA CONCENTRATE [Concomitant]
     Dosage: SOLUTION INTRAVENOUS

REACTIONS (4)
  - Hypersensitivity [Recovered/Resolved]
  - Arthritis [Recovered/Resolved]
  - Bone lesion [Recovered/Resolved]
  - Diarrhoea [Recovered/Resolved]
